FAERS Safety Report 6861055-8 (Version None)
Quarter: 2010Q3

REPORT INFORMATION
  Report Type: 
  Country: None (occurrence: None)
  Receive Date: 20100720
  Receipt Date: 20100609
  Transmission Date: 20110219
  Serious: Yes (Other)
  Sender: FDA-Public Use
  Company Number: US-BAXTER-2010BH003667

PATIENT
  Sex: Female
  Weight: 217 kg

DRUGS (17)
  1. HEPARIN SODIUM [Suspect]
     Indication: PULMONARY EMBOLISM
     Route: 042
     Dates: start: 20080313, end: 20080320
  2. HEPARIN SODIUM [Suspect]
     Indication: THROMBOEMBOLECTOMY
     Route: 042
     Dates: start: 20080313, end: 20080320
  3. HEPARIN SODIUM [Suspect]
     Route: 042
     Dates: start: 20080313, end: 20080320
  4. HEPARIN SODIUM [Suspect]
     Route: 042
     Dates: start: 20080313, end: 20080320
  5. HEPARIN SODIUM [Suspect]
     Route: 042
     Dates: start: 20080313, end: 20080320
  6. HEPARIN SODIUM [Suspect]
     Route: 042
     Dates: start: 20080313, end: 20080320
  7. HEPARIN SODIUM [Suspect]
     Route: 042
     Dates: start: 20080313, end: 20080320
  8. HEPARIN SODIUM [Suspect]
     Route: 042
     Dates: start: 20080313, end: 20080320
  9. WARFARIN SODIUM [Concomitant]
     Indication: PRODUCT USED FOR UNKNOWN INDICATION
     Route: 065
  10. SODIUM CHLORIDE 0.9% IN PLASTIC CONTAINER [Concomitant]
     Indication: PRODUCT USED FOR UNKNOWN INDICATION
     Route: 065
  11. RESTORIL [Concomitant]
     Indication: PRODUCT USED FOR UNKNOWN INDICATION
     Route: 065
  12. ZOFRAN [Concomitant]
     Indication: PRODUCT USED FOR UNKNOWN INDICATION
     Route: 065
  13. ATIVAN [Concomitant]
     Indication: PRODUCT USED FOR UNKNOWN INDICATION
     Route: 065
  14. TYLENOL [Concomitant]
     Indication: PRODUCT USED FOR UNKNOWN INDICATION
     Route: 065
  15. PERCOCET [Concomitant]
     Indication: PRODUCT USED FOR UNKNOWN INDICATION
     Route: 065
  16. MORPHINE SULFATE [Concomitant]
     Indication: PRODUCT USED FOR UNKNOWN INDICATION
     Route: 065
  17. LASIX [Concomitant]
     Indication: PRODUCT USED FOR UNKNOWN INDICATION
     Route: 065

REACTIONS (10)
  - ABDOMINAL PAIN UPPER [None]
  - CHEST DISCOMFORT [None]
  - CHEST PAIN [None]
  - DIARRHOEA [None]
  - DYSPNOEA [None]
  - HYPOTENSION [None]
  - NAUSEA [None]
  - PARAESTHESIA [None]
  - SWELLING FACE [None]
  - VISION BLURRED [None]
